FAERS Safety Report 23999939 (Version 1)
Quarter: 2024Q2

REPORT INFORMATION
  Report Type: Spontaneous
  Country: FR (occurrence: FR)
  Receive Date: 20240621
  Receipt Date: 20240621
  Transmission Date: 20240716
  Serious: Yes (Death)
  Sender: FDA-Public Use
  Company Number: None

PATIENT
  Age: 64 Year
  Sex: Female
  Weight: 50 kg

DRUGS (4)
  1. PANTOPRAZOLE [Suspect]
     Active Substance: PANTOPRAZOLE
     Indication: Dysphagia
     Dosage: 40 MILLIGRAM, QD
     Route: 048
     Dates: start: 20240214, end: 20240430
  2. AMLODIPINE [Suspect]
     Active Substance: AMLODIPINE BESYLATE
     Indication: Hypertension
     Dosage: 5 MILLIGRAM, QD
     Route: 048
     Dates: start: 20231015, end: 20240511
  3. PYLERA [Suspect]
     Active Substance: BISMUTH SUBCITRATE POTASSIUM\METRONIDAZOLE\TETRACYCLINE HYDROCHLORIDE
     Indication: Helicobacter gastritis
     Dosage: 12 DOSAGE FORM, QD
     Route: 048
     Dates: start: 20240501, end: 20240511
  4. OMEPRAZOLE [Suspect]
     Active Substance: DONEPEZIL HYDROCHLORIDE\OMEPRAZOLE\OMEPRAZOLE MAGNESIUM
     Indication: Helicobacter gastritis
     Dosage: 20 MILLIGRAM, QD
     Route: 048
     Dates: start: 20240501, end: 20240511

REACTIONS (5)
  - Atrioventricular block complete [Fatal]
  - Hypoxic-ischaemic encephalopathy [Fatal]
  - Encephalopathy [Fatal]
  - Cardio-respiratory arrest [Fatal]
  - Hyponatraemia [Fatal]

NARRATIVE: CASE EVENT DATE: 20240511
